FAERS Safety Report 12415420 (Version 1)
Quarter: 2016Q2

REPORT INFORMATION
  Report Type: Other
  Country: US (occurrence: US)
  Receive Date: 20160530
  Receipt Date: 20160530
  Transmission Date: 20160815
  Serious: Yes (Hospitalization, Other)
  Sender: FDA-Public Use
  Company Number: US-JUBILANT GENERICS LIMITED-1052946

PATIENT
  Age: 46 Year
  Sex: Male

DRUGS (3)
  1. METOPROLOL UNKNOWN [Suspect]
     Active Substance: METOPROLOL
  2. VALSARTAN. [Suspect]
     Active Substance: VALSARTAN
  3. AMLODIPINE [Suspect]
     Active Substance: AMLODIPINE BESYLATE

REACTIONS (5)
  - Overdose [Not Recovered/Not Resolved]
  - Shock [Recovered/Resolved]
  - Hepatic failure [Not Recovered/Not Resolved]
  - Toxicity to various agents [Not Recovered/Not Resolved]
  - Renal failure [Not Recovered/Not Resolved]

NARRATIVE: CASE EVENT DATE: 20160516
